FAERS Safety Report 6503175-3 (Version None)
Quarter: 2009Q4

REPORT INFORMATION
  Report Type: 
  Country: None (occurrence: None)
  Receive Date: 20091201
  Receipt Date: 20090724
  Transmission Date: 20100525
  Serious: Yes (Hospitalization)
  Sender: FDA-Public Use
  Company Number: 2009SP016940

PATIENT
  Age: 28 Year
  Sex: Female
  Weight: 81.6475 kg

DRUGS (3)
  1. NUVARING [Suspect]
     Indication: CONTRACEPTION
     Dosage: 1 DF; QM;VAG
     Route: 067
     Dates: start: 20040101, end: 20050501
  2. WELLBUTRIN [Concomitant]
  3. ORTHO EVRA [Concomitant]

REACTIONS (1)
  - TRANSVERSE SINUS THROMBOSIS [None]
